FAERS Safety Report 19222202 (Version 2)
Quarter: 2021Q2

REPORT INFORMATION
  Report Type: Spontaneous
  Country: MA (occurrence: MA)
  Receive Date: 20210506
  Receipt Date: 20210623
  Transmission Date: 20210717
  Serious: Yes (Other)
  Sender: FDA-Public Use
  Company Number: MA-MYLANLABS-2021M1026441

PATIENT
  Age: 73 Year
  Sex: Male

DRUGS (14)
  1. PACLITAXEL. [Suspect]
     Active Substance: PACLITAXEL
     Dosage: THIRD CYCLE
     Route: 065
     Dates: start: 20170209
  2. METRONIDAZOLE. [Concomitant]
     Active Substance: METRONIDAZOLE
     Indication: DYSENTERY
     Dosage: UNK
     Route: 065
  3. PACLITAXEL. [Suspect]
     Active Substance: PACLITAXEL
     Dosage: SECOND CYCLE
     Route: 065
     Dates: start: 20170119
  4. CARBOPLATIN. [Suspect]
     Active Substance: CARBOPLATIN
     Indication: LUNG SQUAMOUS CELL CARCINOMA STAGE IV
     Dosage: FIRST CYCLE
     Route: 065
     Dates: start: 20161226
  5. LOPERAMIDE [Concomitant]
     Active Substance: LOPERAMIDE
     Indication: DYSENTERY
     Dosage: UNK
     Route: 065
  6. DIOSMECTITE [Concomitant]
     Active Substance: MONTMORILLONITE
     Indication: DYSENTERY
     Dosage: UNK
     Route: 065
  7. DIOSMIN [Concomitant]
     Active Substance: DIOSMIN
     Indication: HAEMORRHOIDS
     Dosage: UNK
     Route: 065
  8. PACLITAXEL. [Suspect]
     Active Substance: PACLITAXEL
     Indication: LUNG SQUAMOUS CELL CARCINOMA STAGE IV
     Dosage: FIRST CYCLE
     Route: 065
     Dates: start: 20161226
  9. CARBOPLATIN. [Suspect]
     Active Substance: CARBOPLATIN
     Dosage: SECOND CYCLE
     Route: 065
     Dates: start: 20170119
  10. CARBOPLATIN. [Suspect]
     Active Substance: CARBOPLATIN
     Dosage: FOURTH CYCLE
     Route: 065
     Dates: start: 20170316
  11. PACLITAXEL. [Suspect]
     Active Substance: PACLITAXEL
     Dosage: FOURTH CYCLE
     Route: 065
     Dates: start: 20170316
  12. CARBOPLATIN. [Suspect]
     Active Substance: CARBOPLATIN
     Dosage: THIRD CYCLE
     Route: 065
     Dates: start: 20170209
  13. LIDOCAINE HYDROCHLORIDE. [Concomitant]
     Active Substance: LIDOCAINE HYDROCHLORIDE
     Indication: PRODUCT USED FOR UNKNOWN INDICATION
     Dosage: UNK
     Route: 065
  14. HESPERIDIN [Concomitant]
     Active Substance: HESPERIDIN
     Indication: HAEMORRHOIDS
     Dosage: UNK
     Route: 065

REACTIONS (5)
  - General physical health deterioration [Not Recovered/Not Resolved]
  - Nervous system disorder [Not Recovered/Not Resolved]
  - Nausea [Not Recovered/Not Resolved]
  - Diarrhoea [Not Recovered/Not Resolved]
  - Decreased appetite [Not Recovered/Not Resolved]
